FAERS Safety Report 6389030-0 (Version None)
Quarter: 2009Q4

REPORT INFORMATION
  Report Type: 
  Country: None (occurrence: None)
  Receive Date: 20091001
  Receipt Date: 20090922
  Transmission Date: 20100525
  Serious: Yes (Other)
  Sender: FDA-Public Use
  Company Number: ADR30122009

PATIENT
  Age: 69 Year
  Sex: Female

DRUGS (2)
  1. RAMIPRIL [Suspect]
     Indication: HYPERTENSION
     Route: 048
     Dates: start: 20040501, end: 20050901
  2. BENDROFLUMETHIAZIDE [Concomitant]

REACTIONS (4)
  - DIARRHOEA [None]
  - PANCREATIC CYST [None]
  - PANCREATITIS CHRONIC [None]
  - WEIGHT DECREASED [None]
